FAERS Safety Report 24004239 (Version 5)
Quarter: 2024Q3

REPORT INFORMATION
  Report Type: Spontaneous
  Country: CA (occurrence: CA)
  Receive Date: 20240624
  Receipt Date: 20240912
  Transmission Date: 20241016
  Serious: Yes (Other)
  Sender: NOVARTIS
  Company Number: CA-SANDOZ-SDZ2024CA059029

PATIENT
  Age: 54 Year
  Sex: Female

DRUGS (2)
  1. LETROZOLE [Suspect]
     Active Substance: LETROZOLE
     Indication: Invasive ductal breast carcinoma
     Dosage: UNK
     Route: 065
  2. STELARA [Suspect]
     Active Substance: USTEKINUMAB
     Indication: Colitis ulcerative
     Dosage: 90 MG, (1 EVERY 6 WEEKS)
     Route: 058

REACTIONS (9)
  - Adverse event [Recovering/Resolving]
  - Burnout syndrome [Recovering/Resolving]
  - Colitis ulcerative [Recovering/Resolving]
  - Invasive ductal breast carcinoma [Recovering/Resolving]
  - Arthralgia [Recovering/Resolving]
  - Insomnia [Recovering/Resolving]
  - Anxiety [Recovering/Resolving]
  - COVID-19 [Recovering/Resolving]
  - Bronchitis [Recovering/Resolving]
